FAERS Safety Report 11327258 (Version 2)
Quarter: 2015Q3

REPORT INFORMATION
  Report Type: Spontaneous
  Country: US (occurrence: US)
  Receive Date: 20150731
  Receipt Date: 20150821
  Transmission Date: 20151125
  Serious: Yes (Hospitalization, Other)
  Sender: FDA-Public Use
  Company Number: US-PFIZER INC-2015256444

PATIENT
  Sex: Female
  Weight: 64 kg

DRUGS (4)
  1. SOMA [Concomitant]
     Active Substance: CARISOPRODOL
     Dosage: UNK
     Dates: start: 201408
  2. LYRICA [Suspect]
     Active Substance: PREGABALIN
     Indication: NECK PAIN
     Dosage: 20 MG, 1X/DAY
     Route: 048
  3. HYDROCODONE [Concomitant]
     Active Substance: HYDROCODONE
     Dosage: UNK
     Dates: end: 201410
  4. LYRICA [Suspect]
     Active Substance: PREGABALIN
     Indication: BACK PAIN
     Dosage: 500 MG, 1X/DAY
     Route: 048

REACTIONS (7)
  - Pain [Unknown]
  - Mental impairment [Unknown]
  - Condition aggravated [Unknown]
  - Generalised tonic-clonic seizure [Recovered/Resolved]
  - Depression [Unknown]
  - Activities of daily living impaired [Unknown]
  - Amnesia [Unknown]
